FAERS Safety Report 14100216 (Version 1)
Quarter: 2017Q4

REPORT INFORMATION
  Report Type: Spontaneous
  Country: US (occurrence: US)
  Receive Date: 20171017
  Receipt Date: 20171017
  Transmission Date: 20180321
  Serious: No
  Sender: FDA-Public Use
  Company Number: US-ALKERMES INC.-ALK-2017-003978

PATIENT
  Age: 30 Year
  Sex: Male
  Weight: 86.62 kg

DRUGS (1)
  1. ARISTADA [Suspect]
     Active Substance: ARIPIPRAZOLE LAUROXIL
     Indication: SCHIZOPHRENIA
     Dosage: 882 MG, QMO
     Route: 030
     Dates: start: 20170813, end: 20170911

REACTIONS (2)
  - Violence-related symptom [Not Recovered/Not Resolved]
  - Psychotic symptom [Not Recovered/Not Resolved]
